FAERS Safety Report 8021853-4 (Version None)
Quarter: 2011Q4

REPORT INFORMATION
  Report Type: 
  Country: None (occurrence: None)
  Receive Date: 20111230
  Receipt Date: 20111216
  Transmission Date: 20120403
  Serious: Yes (Life-Threatening)
  Sender: FDA-Public Use
  Company Number: 2011AP003080

PATIENT
  Age: 68 Year
  Sex: Male

DRUGS (9)
  1. LANSOPRAZOLE [Concomitant]
  2. AMLODIPINE [Suspect]
     Indication: HYPERTENSION
     Dosage: 5 MG; PO; QD
     Route: 048
     Dates: start: 20111114
  3. BISOPROLOL FUMARATE [Concomitant]
  4. ASPIRIN [Concomitant]
  5. TRAMADOL HCL [Concomitant]
  6. OMACOR /00931501/ (LIPITAC) [Concomitant]
  7. RAMIPRIL [Concomitant]
  8. PRAVASTATIN [Concomitant]
  9. DIETHYLSTILBESTROL [Suspect]
     Dosage: 1 MG;QD, PO
     Route: 048
     Dates: start: 20110601

REACTIONS (4)
  - MYALGIA [None]
  - EMBOLISM [None]
  - BACK PAIN [None]
  - PAIN IN EXTREMITY [None]
